FAERS Safety Report 18867269 (Version 1)
Quarter: 2021Q1

REPORT INFORMATION
  Report Type: Spontaneous
  Country: GB (occurrence: GB)
  Receive Date: 20210209
  Receipt Date: 20210209
  Transmission Date: 20210420
  Serious: Yes (Hospitalization)
  Sender: FDA-Public Use
  Company Number: GB-PFIZER INC-2021091788

PATIENT
  Age: 97 Year
  Sex: Male
  Weight: 82 kg

DRUGS (10)
  1. SPIRONOLACTONE. [Suspect]
     Active Substance: SPIRONOLACTONE
     Dosage: 25 MG
     Dates: start: 20210113
  2. LANSOPRAZOLE. [Concomitant]
     Active Substance: LANSOPRAZOLE
     Dosage: 1 DF, 1X/DAY
     Dates: start: 20200911
  3. CETRABEN [PARAFFIN] [Concomitant]
     Active Substance: PARAFFIN
     Dosage: APPLY TO DRY AREAS AS OFTEN AS REQUIRED. CAN BE...
     Dates: start: 20200911
  4. PARACETAMOL [Concomitant]
     Active Substance: ACETAMINOPHEN
     Dosage: TAKE ONE OR TWO TABLETS FOUR TIMES A DAY AS REQ...
     Dates: start: 20200911
  5. GABAPENTIN. [Concomitant]
     Active Substance: GABAPENTIN
     Dosage: 1 DF, 1X/DAY (TAKE ONE AT NIGHT)
     Dates: start: 20200911
  6. HYDROMOL [EMULSIFYING WAX;PARAFFIN SOFT] [Concomitant]
     Dosage: USE AS DIRECTED
     Dates: start: 20201130
  7. FINASTERIDE. [Concomitant]
     Active Substance: FINASTERIDE
     Dosage: 1 DF, 1X/DAY
     Dates: start: 20200911
  8. FOLIC ACID. [Concomitant]
     Active Substance: FOLIC ACID
     Dosage: 1 DF, 1X/DAY
     Dates: start: 20200911
  9. FUROSEMIDE. [Concomitant]
     Active Substance: FUROSEMIDE
     Dosage: 1 DF, 1X/DAY (TAKE ONE EACH MORNING)
     Dates: start: 20201112
  10. SPIRONOLACTONE. [Concomitant]
     Active Substance: SPIRONOLACTONE
     Dosage: 0.5 DF, 1X/DAY (TAKE HALF OF ONE TABLET DAILY)
     Dates: start: 20210108

REACTIONS (1)
  - Rash macular [Recovered/Resolved]

NARRATIVE: CASE EVENT DATE: 20210113
